FAERS Safety Report 9369714 (Version 1)
Quarter: 2013Q2

REPORT INFORMATION
  Report Type: Spontaneous
  Country: US (occurrence: US)
  Receive Date: 20130626
  Receipt Date: 20130626
  Transmission Date: 20140414
  Serious: No
  Sender: FDA-Public Use
  Company Number: US-MYLANLABS-2013S1004217

PATIENT
  Age: 51 Year
  Sex: Female
  Weight: 47.63 kg

DRUGS (4)
  1. OMEPRAZOLE DELAYED-RELEASE CAPSULES, USP [Suspect]
     Indication: DUODENAL ULCER
     Route: 048
     Dates: start: 20130129, end: 201302
  2. DILTIAZEM [Concomitant]
     Dosage: YEARS
     Route: 048
  3. HYDROXIZINE [Concomitant]
  4. ASPIRIN [Concomitant]
     Dosage: ENTERIC COATED. TAKEN FOR YEARS.
     Route: 048

REACTIONS (2)
  - Rash generalised [Recovered/Resolved]
  - Reaction to drug excipients [Not Recovered/Not Resolved]
